FAERS Safety Report 5575136-2 (Version None)
Quarter: 2007Q4

REPORT INFORMATION
  Report Type: 
  Country: None (occurrence: None)
  Receive Date: 20071130
  Receipt Date: 20070804
  Transmission Date: 20080405
  Serious: No
  Sender: FDA-Public Use
  Company Number: US200708001172

PATIENT
  Age: 47 Year
  Sex: Female
  Weight: 74.8 kg

DRUGS (10)
  1. BYETTA [Suspect]
     Indication: TYPE 2 DIABETES MELLITUS
     Dosage: 5 UG, 2/D, SUBCUTANEOUS, 10UG, 2/D, SUBCUTANEOUS
     Route: 058
     Dates: start: 20061001, end: 20061101
  2. BYETTA [Suspect]
     Indication: TYPE 2 DIABETES MELLITUS
     Dosage: 5 UG, 2/D, SUBCUTANEOUS, 10UG, 2/D, SUBCUTANEOUS
     Route: 058
     Dates: start: 20061101, end: 20070101
  3. EXENATIDE 10MCG PEN, DISPOSABLE DEVICE (EXENATIDE PEN (10MCG)) PEN,DIS [Concomitant]
  4. EXENATIDE 5MCG PEN, DISPOSABLE DEVICE (EXENATIDE PEN (TMCG)) PEN,DISPO [Concomitant]
  5. EXENATIDE 10MCG, PEN, DISPOSABLE DEVICE (EXENATIDE PEN (10MCG)) PEN,DI [Concomitant]
  6. METFORMIN HCL [Concomitant]
  7. VYTORIN [Concomitant]
  8. COZAAR [Concomitant]
  9. ASPIRIN /USA/ (ACETYLSALICYLIC ACID) [Concomitant]
  10. CENTRUM (MINERALS NOS, VITAMINS NOS) [Concomitant]

REACTIONS (14)
  - ABDOMINAL DISTENSION [None]
  - ANOREXIA [None]
  - ASTHENIA [None]
  - BODY TEMPERATURE DECREASED [None]
  - CHILLS [None]
  - CONSTIPATION [None]
  - DYSGEUSIA [None]
  - FEELING ABNORMAL [None]
  - FEELING COLD [None]
  - FEELING HOT [None]
  - NAUSEA [None]
  - PALLOR [None]
  - VISION BLURRED [None]
  - WEIGHT DECREASED [None]
